FAERS Safety Report 6087276-2 (Version None)
Quarter: 2009Q1

REPORT INFORMATION
  Report Type: 
  Country: None (occurrence: None)
  Receive Date: 20090223
  Receipt Date: 20090217
  Transmission Date: 20090719
  Serious: Yes (Congenital Anomaly)
  Sender: FDA-Public Use
  Company Number: A0687219A

PATIENT
  Sex: Male

DRUGS (4)
  1. PAXIL [Suspect]
     Indication: ELECTROLYTE IMBALANCE
     Dosage: 20MG PER DAY
     Dates: start: 19930101, end: 20031001
  2. TYLENOL [Concomitant]
     Indication: PAIN
  3. ADVIL [Concomitant]
     Indication: PAIN
  4. VITAMIN TAB [Concomitant]

REACTIONS (3)
  - DRUG EXPOSURE DURING PREGNANCY [None]
  - MULTIPLE CONGENITAL ABNORMALITIES [None]
  - XANTHOGRANULOMA [None]
